FAERS Safety Report 9265841 (Version 2)
Quarter: 2013Q2

REPORT INFORMATION
  Report Type: Spontaneous
  Country: US (occurrence: US)
  Receive Date: 20130501
  Receipt Date: 20130504
  Transmission Date: 20140414
  Serious: Yes (Other)
  Sender: FDA-Public Use
  Company Number: US-TEVA-402360USA

PATIENT
  Age: 56 Year
  Sex: Male

DRUGS (1)
  1. TRISENOX [Suspect]
     Indication: ACUTE PROMYELOCYTIC LEUKAEMIA
     Dosage: 14 MILLIGRAM DAILY; TWO-5 DAY CYCLES, FIRST DOSE OF THIRD CYCLE
     Route: 042

REACTIONS (4)
  - Renal failure acute [Not Recovered/Not Resolved]
  - Renal tubular necrosis [Unknown]
  - Lung disorder [Unknown]
  - Cardiovascular disorder [Unknown]
